FAERS Safety Report 9366485 (Version 1)
Quarter: 2013Q2

REPORT INFORMATION
  Report Type: Spontaneous
  Country: CN (occurrence: CN)
  Receive Date: 20130625
  Receipt Date: 20130625
  Transmission Date: 20140414
  Serious: Yes (Death)
  Sender: FDA-Public Use
  Company Number: CN-OTSUKA-US-2012-11132

PATIENT
  Sex: 0

DRUGS (2)
  1. CILOSTAZOL [Suspect]
     Indication: ANTIPLATELET THERAPY
     Dosage: 100 MG MILLIGRAM(S), BID FOR 6 MONTHS
     Route: 048
  2. ASPIRIN [Concomitant]
     Indication: ANTIPLATELET THERAPY
     Dosage: 100 MG MILLIGRAM(S), DAILY DOSE

REACTIONS (1)
  - Lung neoplasm malignant [Fatal]
